FAERS Safety Report 7420993-8 (Version None)
Quarter: 2011Q2

REPORT INFORMATION
  Report Type: 
  Country: None (occurrence: None)
  Receive Date: 20110408
  Receipt Date: 20110330
  Transmission Date: 20111010
  Serious: Yes (Other)
  Sender: FDA-Public Use
  Company Number: 878651

PATIENT
  Age: 63 Year
  Sex: Female
  Weight: 65 kg

DRUGS (1)
  1. (PAMIDRONIC ACID) [Suspect]
     Indication: OSTEOPOROSIS
     Dosage: 90 MG MILLIGRAM(S), 1 MONTH, INTRAVENOUS
     Route: 042
     Dates: start: 20070101, end: 20090101

REACTIONS (3)
  - APLASTIC ANAEMIA [None]
  - PANCYTOPENIA [None]
  - BONE MARROW FAILURE [None]
